FAERS Safety Report 12415289 (Version 1)
Quarter: 2016Q2

REPORT INFORMATION
  Report Type: Spontaneous
  Country: US (occurrence: US)
  Receive Date: 20160530
  Receipt Date: 20160530
  Transmission Date: 20160815
  Serious: No
  Sender: FDA-Public Use
  Company Number: US-PFIZER INC-2016247629

PATIENT
  Age: 33 Year
  Sex: Female
  Weight: 86.17 kg

DRUGS (2)
  1. FISH OIL [Concomitant]
     Active Substance: FISH OIL
     Dosage: UNK
  2. GENOTROPIN [Suspect]
     Active Substance: SOMATROPIN
     Indication: HYPOPITUITARISM
     Dosage: 0.2 MG, DAILY
     Route: 058
     Dates: start: 201603

REACTIONS (3)
  - Hot flush [Unknown]
  - Hyperhidrosis [Unknown]
  - Energy increased [Unknown]
